FAERS Safety Report 5968974-5 (Version None)
Quarter: 2008Q4

REPORT INFORMATION
  Report Type: 
  Country: None (occurrence: None)
  Receive Date: 20081126
  Receipt Date: 20081120
  Transmission Date: 20090506
  Serious: Yes (Death)
  Sender: FDA-Public Use
  Company Number: CA-ROCHE-592949

PATIENT
  Sex: Female

DRUGS (2)
  1. XELODA [Suspect]
     Route: 048
     Dates: start: 20080101
  2. XELODA [Suspect]
     Route: 048
     Dates: start: 20080923, end: 20081020

REACTIONS (2)
  - DISEASE PROGRESSION [None]
  - MUSCLE MASS [None]
